FAERS Safety Report 8128820-0 (Version None)
Quarter: 2012Q1

REPORT INFORMATION
  Report Type: 
  Country: None (occurrence: None)
  Receive Date: 20120210
  Receipt Date: 20110315
  Transmission Date: 20120608
  Serious: No
  Sender: FDA-Public Use
  Company Number: US-BRISTOL-MYERS SQUIBB COMPANY-15609613

PATIENT
  Age: 79 Year
  Sex: Female

DRUGS (11)
  1. SYNTHROID [Concomitant]
  2. METAMUCIL-2 [Concomitant]
  3. CALCIUM [Concomitant]
  4. RESTASIS [Concomitant]
     Dosage: EYE DROPS
     Route: 047
  5. TOPROL-XL [Concomitant]
  6. NEXIUM [Concomitant]
  7. ORENCIA [Suspect]
     Dosage: LAST TREATMENT ON 10DEC2010
  8. VACCINE [Suspect]
     Indication: HERPES ZOSTER
     Dates: start: 20110208
  9. NORVASC [Concomitant]
  10. PREDNISONE TAB [Concomitant]
  11. FORTICAL [Concomitant]
     Dosage: SPRAY
     Route: 045

REACTIONS (1)
  - SEBORRHOEIC KERATOSIS [None]
